FAERS Safety Report 17238765 (Version 1)
Quarter: 2020Q1

REPORT INFORMATION
  Report Type: Spontaneous
  Country: US (occurrence: US)
  Receive Date: 20200106
  Receipt Date: 20200106
  Transmission Date: 20200409
  Serious: No
  Sender: FDA-Public Use
  Company Number: US-PACIRA-201800108

PATIENT
  Age: 45 Year
  Sex: Female

DRUGS (2)
  1. EXPAREL [Suspect]
     Active Substance: BUPIVACAINE
     Indication: ABDOMINOPLASTY
     Dosage: 234.08 MG OF EXPAREL AND 8.8 ML OF 0.5% BUPIVACAINE, SINGLE, FREQUENCY : SINGLE
     Dates: start: 20181113, end: 20181113
  2. BUPIVACAINE. [Suspect]
     Active Substance: BUPIVACAINE
     Indication: ABDOMINOPLASTY
     Dosage: 234.08 MG OF EXPAREL AND 8.8 ML OF 0.5% BUPIVACAINE, SINGLE, FREQUENCY : SINGLE
     Dates: start: 20181113, end: 20181113

REACTIONS (2)
  - Intercepted medication error [Recovered/Resolved]
  - No adverse event [Unknown]

NARRATIVE: CASE EVENT DATE: 20181113
